FAERS Safety Report 16856826 (Version 3)
Quarter: 2020Q3

REPORT INFORMATION
  Report Type: Spontaneous
  Country: US (occurrence: US)
  Receive Date: 20190926
  Receipt Date: 20200824
  Transmission Date: 20201102
  Serious: Yes (Hospitalization, Disabling)
  Sender: FDA-Public Use
  Company Number: US-JNJFOC-20190928875

PATIENT
  Age: 38 Year
  Sex: Male

DRUGS (1)
  1. INVOKANA [Suspect]
     Active Substance: CANAGLIFLOZIN
     Indication: TYPE 2 DIABETES MELLITUS
     Route: 048

REACTIONS (5)
  - Gangrene [Not Recovered/Not Resolved]
  - Leg amputation [Unknown]
  - Skin ulcer [Unknown]
  - Osteomyelitis chronic [Not Recovered/Not Resolved]
  - Toe amputation [Unknown]

NARRATIVE: CASE EVENT DATE: 20130509
